FAERS Safety Report 6029673-7 (Version None)
Quarter: 2009Q1

REPORT INFORMATION
  Report Type: 
  Country: None (occurrence: None)
  Receive Date: 20090107
  Receipt Date: 20090103
  Transmission Date: 20090719
  Serious: Yes (Hospitalization, Other)
  Sender: FDA-Public Use
  Company Number: US-PFIZER INC-2008092842

PATIENT
  Sex: Female
  Weight: 68.181 kg

DRUGS (4)
  1. LIPITOR [Suspect]
     Indication: BLOOD CHOLESTEROL
     Route: 048
  2. WARFARIN SODIUM [Concomitant]
  3. VALSARTAN [Concomitant]
  4. VERAPAMIL [Concomitant]

REACTIONS (3)
  - GALLBLADDER DISORDER [None]
  - HAEMORRHAGIC HEPATIC CYST [None]
  - HEPATIC CYST [None]
